FAERS Safety Report 7463243-9 (Version None)
Quarter: 2011Q2

REPORT INFORMATION
  Report Type: 
  Country: None (occurrence: None)
  Receive Date: 20110506
  Receipt Date: 20110426
  Transmission Date: 20111010
  Serious: Yes (Disabling)
  Sender: FDA-Public Use
  Company Number: FR-ROCHE-774308

PATIENT
  Sex: Female

DRUGS (5)
  1. ZOMETA [Suspect]
     Dosage: INTERRUPTED, FORM: INFUSION
     Route: 042
     Dates: start: 20090601
  2. ZOMETA [Suspect]
     Route: 042
     Dates: start: 20100120, end: 20100308
  3. AVASTIN [Suspect]
     Indication: BREAST CANCER
     Dosage: FORM: INFUSION
     Route: 042
     Dates: start: 20091101, end: 20100601
  4. PACLITAXEL [Suspect]
     Indication: BREAST CANCER
     Route: 042
     Dates: start: 20091101
  5. TAMOXIFEN CITRATE [Suspect]
     Indication: BREAST CANCER
     Dosage: DRUG REPORTED: TAMOXIFENE BASE
     Route: 042
     Dates: start: 20090601, end: 20091101

REACTIONS (1)
  - OSTEONECROSIS OF JAW [None]
